FAERS Safety Report 5068442-1 (Version None)
Quarter: 2006Q3

REPORT INFORMATION
  Report Type: 
  Country: None (occurrence: None)
  Receive Date: 20060802
  Receipt Date: 20050930
  Transmission Date: 20061208
  Serious: No
  Sender: FDA-Public Use
  Company Number: US-BRISTOL-MYERS SQUIBB COMPANY-13127808

PATIENT
  Age: 78 Year
  Sex: Male
  Weight: 75 kg

DRUGS (2)
  1. COUMADIN [Suspect]
     Indication: ATRIAL FIBRILLATION
     Dosage: 5 MG DAILY ALTERNATED WITH 3 MG DAILY
     Route: 048
     Dates: start: 20050926
  2. COUMADIN [Suspect]
     Dates: start: 20050926

REACTIONS (1)
  - INTERNATIONAL NORMALISED RATIO DECREASED [None]
